FAERS Safety Report 15526094 (Version 1)
Quarter: 2018Q4

REPORT INFORMATION
  Report Type: Spontaneous
  Country: US (occurrence: US)
  Receive Date: 20181018
  Receipt Date: 20181018
  Transmission Date: 20190205
  Serious: No
  Sender: FDA-Public Use
  Company Number: US-EISAI MEDICAL RESEARCH-EC-2018-046383

PATIENT
  Sex: Male

DRUGS (4)
  1. NORCO [Concomitant]
     Active Substance: ACETAMINOPHEN\HYDROCODONE BITARTRATE
  2. LENVIMA [Suspect]
     Active Substance: LENVATINIB
     Indication: HEPATIC CANCER
     Route: 048
     Dates: start: 20180911
  3. VITAMIN D3 [Concomitant]
     Active Substance: CHOLECALCIFEROL
  4. TACROLIMUS. [Concomitant]
     Active Substance: TACROLIMUS

REACTIONS (2)
  - Blood pressure increased [Not Recovered/Not Resolved]
  - Plicated tongue [Not Recovered/Not Resolved]

NARRATIVE: CASE EVENT DATE: 2018
